FAERS Safety Report 8122198-4 (Version None)
Quarter: 2012Q1

REPORT INFORMATION
  Report Type: 
  Country: None (occurrence: None)
  Receive Date: 20120208
  Receipt Date: 20120130
  Transmission Date: 20120608
  Serious: Yes (Hospitalization)
  Sender: FDA-Public Use
  Company Number: US-BAYER-2011-104465

PATIENT
  Age: 23 Year
  Sex: Female
  Weight: 85.714 kg

DRUGS (6)
  1. YAZ [Suspect]
     Indication: CONTRACEPTION
     Dosage: UNK
     Dates: start: 20080901, end: 20081201
  2. PEPCID [Concomitant]
  3. NSAID'S [Concomitant]
     Dosage: UNK
     Route: 048
     Dates: start: 20010101
  4. YAZ [Suspect]
     Dosage: UNK
     Dates: start: 20090820, end: 20091013
  5. BENADRYL [Concomitant]
     Dosage: 500 MG, PRN
  6. DIPHENHYDRAMINE HCL [Concomitant]
     Dosage: 50 MG, UNK
     Route: 048
     Dates: start: 20090706

REACTIONS (2)
  - PULMONARY EMBOLISM [None]
  - MENORRHAGIA [None]
